FAERS Safety Report 8830776 (Version 2)
Quarter: 2012Q4

REPORT INFORMATION
  Report Type: 
  Country: US (occurrence: US)
  Receive Date: 20121009
  Receipt Date: 20121213
  Transmission Date: 20130627
  Serious: No
  Sender: FDA-Public Use
  Company Number: US-009507513-1210USA000423

PATIENT
  Age: 28 Year
  Sex: Female
  Weight: 74.83 kg

DRUGS (4)
  1. PREGNYL [Suspect]
     Indication: OVULATION INDUCTION
     Dosage: 5000 IU, Once
     Route: 030
     Dates: start: 20120926, end: 20120926
  2. MENOPUR [Concomitant]
  3. FOLLISTIM [Concomitant]
  4. CETROTIDE [Concomitant]

REACTIONS (2)
  - Human chorionic gonadotropin abnormal [Recovered/Resolved]
  - Product physical issue [Unknown]
